FAERS Safety Report 8533266-7 (Version None)
Quarter: 2012Q3

REPORT INFORMATION
  Report Type: 
  Country: None (occurrence: None)
  Receive Date: 20120724
  Receipt Date: 20120713
  Transmission Date: 20120928
  Serious: Yes (Hospitalization, Other)
  Sender: FDA-Public Use
  Company Number: US-ELI_LILLY_AND_COMPANY-US201207004521

PATIENT
  Sex: Female

DRUGS (14)
  1. FORTEO [Suspect]
     Indication: OSTEOPOROSIS
     Dosage: UNK, QD
  2. OXYGEN [Concomitant]
     Indication: PULMONARY ARTERIAL HYPERTENSION
     Dosage: 5 LITERS CONSTANT FLOW AT ALL TIMES
  3. ENALAPRIL MALEATE [Concomitant]
     Dosage: 5 MG, QD
  4. GABAPENTIN [Concomitant]
     Dosage: 400 MG, BID
  5. POTASSIUM CHLORIDE [Concomitant]
     Dosage: 10 MEQ, QD
  6. PENTOXIFYLLINE [Concomitant]
  7. GLUCOSAMINE CHONDROITIN [Concomitant]
     Dosage: EFFECTIVE DOSE
  8. TRACLEER [Concomitant]
     Dosage: 125 MG, BID
  9. LOVAZA [Concomitant]
  10. OMEPRAZOLE [Concomitant]
     Dosage: 20 MG, BID
  11. VITAMIN D [Concomitant]
     Dosage: 2000 IU, UNK
  12. FUROSEMIDE [Concomitant]
     Dosage: 40 MG, QD
  13. CALCIUM [Concomitant]
     Dosage: 500 MG, TID
  14. LEVOTHYROXINE SODIUM [Concomitant]
     Dosage: 25 UG, QD

REACTIONS (10)
  - ROAD TRAFFIC ACCIDENT [None]
  - POST-TRAUMATIC NECK SYNDROME [None]
  - ASTHENIA [None]
  - CEREBRAL HAEMATOMA [None]
  - LOSS OF CONSCIOUSNESS [None]
  - MOTOR DYSFUNCTION [None]
  - HEADACHE [None]
  - BALANCE DISORDER [None]
  - CEREBRAL HAEMORRHAGE [None]
  - THINKING ABNORMAL [None]
